FAERS Safety Report 6807695-3 (Version None)
Quarter: 2010Q2

REPORT INFORMATION
  Report Type: 
  Country: None (occurrence: None)
  Receive Date: 20100629
  Receipt Date: 20081123
  Transmission Date: 20101027
  Serious: No
  Sender: FDA-Public Use
  Company Number: US-PFIZER INC-2008085198

PATIENT
  Sex: Female

DRUGS (2)
  1. TIKOSYN [Suspect]
     Indication: ATRIAL FIBRILLATION
     Dates: start: 20080601
  2. WARFARIN SODIUM [Concomitant]
     Dates: start: 20020101

REACTIONS (3)
  - ABDOMINAL PAIN [None]
  - ARTHRITIS [None]
  - HEADACHE [None]
